FAERS Safety Report 9262136 (Version 3)
Quarter: 2013Q2

REPORT INFORMATION
  Report Type: Report from Study
  Country: DE (occurrence: DE)
  Receive Date: 20130430
  Receipt Date: 20130625
  Transmission Date: 20140414
  Serious: Yes (Other)
  Sender: FDA-Public Use
  Company Number: DE-ROCHE-1218277

PATIENT
  Sex: Male

DRUGS (5)
  1. RANIBIZUMAB [Suspect]
     Indication: VISUAL IMPAIRMENT
     Route: 050
     Dates: start: 20120913
  2. RANIBIZUMAB [Suspect]
     Indication: RETINAL VEIN OCCLUSION
     Route: 050
     Dates: start: 20121011
  3. RANIBIZUMAB [Suspect]
     Route: 034
     Dates: start: 20121115
  4. DEXAMYTREX [Concomitant]
     Route: 065
     Dates: start: 20120914
  5. TIM-OPHTAL [Concomitant]
     Route: 065

REACTIONS (2)
  - Cerebral ischaemia [Unknown]
  - Wound infection [Recovered/Resolved]
